FAERS Safety Report 7492395-X (Version None)
Quarter: 2011Q2

REPORT INFORMATION
  Report Type: 
  Country: None (occurrence: None)
  Receive Date: 20110519
  Receipt Date: 20110506
  Transmission Date: 20111010
  Serious: Yes (Hospitalization, Other)
  Sender: FDA-Public Use
  Company Number: US-BAYER-2011-032029

PATIENT
  Age: 36 Year
  Sex: Female
  Weight: 111.57 kg

DRUGS (5)
  1. MULTIVITAMIN PREPARATION + MINERAL SUPPLEMENT [Concomitant]
  2. ACIPHEX [Concomitant]
     Indication: PEPTIC ULCER
  3. YASMIN [Suspect]
     Indication: PRODUCT USED FOR UNKNOWN INDICATION
     Dates: start: 20060601, end: 20060801
  4. LEVOTHYROXINE SODIUM [Concomitant]
     Dosage: 175MG EVERY OTHER DAY; 200MG ALTERNATE DAYS.
  5. VITAMIN C [Concomitant]
     Dosage: 500 MG, QD

REACTIONS (3)
  - EMOTIONAL DISTRESS [None]
  - DEEP VEIN THROMBOSIS [None]
  - THROMBOSIS [None]
